FAERS Safety Report 6656890-5 (Version None)
Quarter: 2010Q1

REPORT INFORMATION
  Report Type: 
  Country: None (occurrence: None)
  Receive Date: 20100329
  Receipt Date: 20100329
  Transmission Date: 20100710
  Serious: No
  Sender: FDA-Public Use
  Company Number: None

PATIENT
  Age: 59 Year
  Sex: Male
  Weight: 72.5755 kg

DRUGS (1)
  1. AVANDAMET 4MG/500MG ORIGIONAL [Suspect]
     Indication: TYPE 2 DIABETES MELLITUS
     Dosage: ONE TABLET TWICE DAILY PO, USED ONCE
     Route: 048
     Dates: start: 20100324, end: 20100324

REACTIONS (9)
  - COUGH [None]
  - EAR PRURITUS [None]
  - EYELID OEDEMA [None]
  - HEAD DISCOMFORT [None]
  - LACRIMATION INCREASED [None]
  - MIDDLE INSOMNIA [None]
  - OCULAR HYPERAEMIA [None]
  - PRURITUS [None]
  - RHINORRHOEA [None]
